FAERS Safety Report 7775827-9 (Version None)
Quarter: 2011Q3

REPORT INFORMATION
  Report Type: 
  Country: None (occurrence: None)
  Receive Date: 20110923
  Receipt Date: 20110919
  Transmission Date: 20111222
  Serious: Yes (Other)
  Sender: FDA-Public Use
  Company Number: PHHY2010CA72117

PATIENT
  Sex: Male

DRUGS (2)
  1. ZOMETA [Suspect]
     Indication: PROSTATE CANCER
     Dosage: 4 MG, EVERY 12 WEEKS
     Route: 042
     Dates: start: 20101022
  2. ZOMETA [Suspect]
     Dosage: 4 MG, EVERY 12 WEEKS
     Route: 042
     Dates: start: 20101201

REACTIONS (5)
  - FALL [None]
  - PAIN [None]
  - BLOOD PRESSURE INCREASED [None]
  - TOOTH FRACTURE [None]
  - DEVICE DISLOCATION [None]
